FAERS Safety Report 7434466-X (Version None)
Quarter: 2011Q2

REPORT INFORMATION
  Report Type: 
  Country: None (occurrence: None)
  Receive Date: 20110420
  Receipt Date: 20110420
  Transmission Date: 20111010
  Serious: Yes (Life-Threatening)
  Sender: FDA-Public Use
  Company Number: None

PATIENT
  Age: 56 Year
  Sex: Male

DRUGS (1)
  1. VORICONAZOLE [Suspect]

REACTIONS (5)
  - HALLUCINATIONS, MIXED [None]
  - DIZZINESS [None]
  - TREATMENT NONCOMPLIANCE [None]
  - AGGRESSION [None]
  - SUICIDAL IDEATION [None]
